FAERS Safety Report 8593444-8 (Version None)
Quarter: 2012Q3

REPORT INFORMATION
  Report Type: 
  Country: None (occurrence: None)
  Receive Date: 20120814
  Receipt Date: 20120803
  Transmission Date: 20120928
  Serious: Yes (Disabling)
  Sender: FDA-Public Use
  Company Number: US-CELGENEUS-163-21880-12080633

PATIENT
  Sex: Male
  Weight: 58.566 kg

DRUGS (18)
  1. ALPHAGAN [Concomitant]
     Indication: GLAUCOMA
     Route: 065
  2. SYNTHROID [Concomitant]
     Indication: HYPOTHYROIDISM
     Route: 065
  3. ZETIA [Concomitant]
     Route: 065
  4. REVLIMID [Suspect]
     Dosage: 20 MILLIGRAM
     Route: 048
     Dates: end: 20120803
  5. REVLIMID [Suspect]
     Dosage: 10 MILLIGRAM
     Route: 048
     Dates: start: 20110701
  6. DECADRON PHOSPHATE [Concomitant]
     Indication: MULTIPLE MYELOMA
     Route: 065
  7. FLOMAX [Concomitant]
     Route: 065
  8. REVLIMID [Suspect]
     Dosage: 10 MILLIGRAM
     Route: 048
     Dates: start: 20120101
  9. LASIX [Concomitant]
     Indication: HYPERTENSION
     Route: 065
  10. ZANTAC [Concomitant]
     Route: 065
  11. ARICEPT [Concomitant]
     Route: 065
  12. PRAVACHOL [Concomitant]
     Route: 065
  13. ZESTRIL [Concomitant]
     Indication: HYPERTENSION
     Route: 065
  14. TRUSOPT [Concomitant]
     Indication: GLAUCOMA
     Route: 065
  15. ACCUPRIL [Concomitant]
     Indication: HYPERTENSION
     Route: 065
  16. REVLIMID [Suspect]
     Indication: MULTIPLE MYELOMA
     Dosage: 25 MILLIGRAM
     Route: 048
     Dates: start: 20100601
  17. LATANOPROST [Concomitant]
     Indication: GLAUCOMA
     Route: 065
  18. POTASSIUM CHLORIDE [Concomitant]
     Route: 065

REACTIONS (2)
  - DEMENTIA ALZHEIMER'S TYPE [None]
  - WEIGHT DECREASED [None]
